FAERS Safety Report 5743604-6 (Version None)
Quarter: 2008Q2

REPORT INFORMATION
  Report Type: 
  Country: None (occurrence: None)
  Receive Date: 20080519
  Receipt Date: 20080519
  Transmission Date: 20081010
  Serious: Yes (Life-Threatening)
  Sender: FDA-Public Use
  Company Number: None

PATIENT
  Age: 57 Year
  Sex: Male
  Weight: 72.5755 kg

DRUGS (1)
  1. MAGNEVIST [Suspect]
     Indication: SCAR
     Dates: start: 20030808, end: 20080509

REACTIONS (28)
  - ANGER [None]
  - ANXIETY [None]
  - ARTHRALGIA [None]
  - ASTHENIA [None]
  - BODY TEMPERATURE DECREASED [None]
  - BONE PAIN [None]
  - COLD SWEAT [None]
  - DYSPNOEA [None]
  - FEAR [None]
  - FEELING ABNORMAL [None]
  - FEELING COLD [None]
  - FEELING HOT [None]
  - HYPERHIDROSIS [None]
  - INJECTION SITE BRUISING [None]
  - NODULE [None]
  - OEDEMA PERIPHERAL [None]
  - PAIN [None]
  - PAIN IN EXTREMITY [None]
  - PERIPHERAL COLDNESS [None]
  - POST PROCEDURAL COMPLICATION [None]
  - RASH PAPULAR [None]
  - RENAL PAIN [None]
  - SENSATION OF HEAVINESS [None]
  - SKIN DISORDER [None]
  - THROMBOSIS [None]
  - VEIN DISCOLOURATION [None]
  - VEIN DISORDER [None]
  - VEIN PAIN [None]
